FAERS Safety Report 4665606-3 (Version None)
Quarter: 2005Q2

REPORT INFORMATION
  Report Type: 
  Country: None (occurrence: None)
  Receive Date: 20050517
  Receipt Date: 20050328
  Transmission Date: 20051028
  Serious: No
  Sender: FDA-Public Use
  Company Number: S05-USA-01604-01

PATIENT
  Age: 76 Year
  Sex: Male

DRUGS (6)
  1. NAMENDA [Suspect]
     Indication: DEMENTIA
     Dosage: 5 MG QD PO
     Route: 048
     Dates: start: 20050312, end: 20050318
  2. NAMENDA [Suspect]
     Indication: DEMENTIA
     Dosage: 5 MG QOD PO
     Route: 048
     Dates: start: 20050319, end: 20050324
  3. NAMENDA [Suspect]
     Indication: DEMENTIA
     Dosage: 10 MG QOD PO
     Route: 048
     Dates: start: 20050319, end: 20050324
  4. NAMENDA [Suspect]
     Indication: DEMENTIA
     Dosage: 10 MG QD PO
     Route: 048
     Dates: start: 20050325
  5. ALCOHOL (ALCOHOL) [Suspect]
     Dates: start: 20050327, end: 20050327
  6. ASPIRIN [Concomitant]

REACTIONS (2)
  - ALCOHOL INTERACTION [None]
  - CONFUSIONAL STATE [None]
